FAERS Safety Report 25368473 (Version 1)
Quarter: 2025Q2

REPORT INFORMATION
  Report Type: Spontaneous
  Country: US (occurrence: US)
  Receive Date: 20250528
  Receipt Date: 20250528
  Transmission Date: 20250717
  Serious: Yes (Disabling, Other)
  Sender: ALCON
  Company Number: US-ALCON LABORATORIES-ALC2025US002662

PATIENT

DRUGS (1)
  1. CYCLOGYL [Suspect]
     Active Substance: CYCLOPENTOLATE HYDROCHLORIDE
     Indication: Product used for unknown indication
     Route: 047

REACTIONS (1)
  - Visual impairment [Unknown]
